FAERS Safety Report 7937899-8 (Version None)
Quarter: 2011Q4

REPORT INFORMATION
  Report Type: 
  Country: None (occurrence: None)
  Receive Date: 20111123
  Receipt Date: 20111121
  Transmission Date: 20120403
  Serious: Yes (Hospitalization, Other)
  Sender: FDA-Public Use
  Company Number: US-AMGEN-USASP2011056722

PATIENT
  Age: 68 Year
  Sex: Female
  Weight: 88.435 kg

DRUGS (16)
  1. VITAMIN D [Concomitant]
  2. IMMUNE GLOBULIN NOS [Concomitant]
     Indication: IDIOPATHIC THROMBOCYTOPENIC PURPURA
  3. PREDNISONE TAB [Concomitant]
     Indication: IDIOPATHIC THROMBOCYTOPENIC PURPURA
  4. SIMVASTATIN [Concomitant]
     Dosage: 20 MG, UNK
  5. NPLATE [Suspect]
     Indication: IDIOPATHIC THROMBOCYTOPENIC PURPURA
     Dosage: UNK
     Dates: start: 20100514, end: 20111010
  6. CYCLOPHOSPHAMIDE [Concomitant]
     Indication: IDIOPATHIC THROMBOCYTOPENIC PURPURA
  7. CALCIUM W/VITAMIN D                /00188401/ [Concomitant]
  8. VICODIN [Concomitant]
  9. LEXAPRO [Concomitant]
     Dosage: 40 MG, UNK
  10. AMLODIPINE [Concomitant]
     Dosage: 10 MG, UNK
  11. CYCLOSPORINE [Concomitant]
     Indication: IDIOPATHIC THROMBOCYTOPENIC PURPURA
  12. LOSARTAN POTASSIUM [Concomitant]
     Dosage: 100 MG, UNK
  13. MULTIVITAMIN                       /00097801/ [Concomitant]
  14. ELTROMBOPAG [Concomitant]
     Dosage: UNK
     Dates: start: 20100722
  15. VINCRISTINE [Concomitant]
  16. TYLENOL (CAPLET) [Concomitant]

REACTIONS (11)
  - CONTUSION [None]
  - BIOPSY BONE MARROW ABNORMAL [None]
  - STOMATITIS [None]
  - THROMBOCYTOPENIA [None]
  - CONSTIPATION [None]
  - NOCTURIA [None]
  - PETECHIAE [None]
  - FATIGUE [None]
  - BONE MARROW RETICULIN FIBROSIS [None]
  - DRUG INEFFECTIVE [None]
  - DECREASED APPETITE [None]
